FAERS Safety Report 22361562 (Version 1)
Quarter: 2023Q2

REPORT INFORMATION
  Report Type: Spontaneous
  Country: US (occurrence: None)
  Receive Date: 20230524
  Receipt Date: 20230524
  Transmission Date: 20230722
  Serious: Yes (Life-Threatening)
  Sender: FDA-Public Use
  Company Number: None

PATIENT
  Sex: Male

DRUGS (2)
  1. NUVIGIL [Suspect]
     Active Substance: ARMODAFINIL
     Indication: Post-traumatic stress disorder
  2. NUVIGIL [Suspect]
     Active Substance: ARMODAFINIL
     Indication: Craniocerebral injury

REACTIONS (1)
  - Aggression [None]

NARRATIVE: CASE EVENT DATE: 20230524
